FAERS Safety Report 26115971 (Version 1)
Quarter: 2025Q4

REPORT INFORMATION
  Report Type: Spontaneous
  Country: EG (occurrence: EG)
  Receive Date: 20251203
  Receipt Date: 20251203
  Transmission Date: 20260118
  Serious: Yes (Hospitalization, Other)
  Sender: BAXTER
  Company Number: EG-BAXTER-2025BAX024750

PATIENT
  Age: 2 Year
  Sex: Male

DRUGS (3)
  1. IFOSFAMIDE [Suspect]
     Active Substance: IFOSFAMIDE
     Indication: Rhabdomyosarcoma
     Dosage: UNK (FOR 3 DAYS) (CONCENTRATION 2 MG)
     Route: 042
     Dates: start: 20250731
  2. CARBOPLATIN [Suspect]
     Active Substance: CARBOPLATIN
     Indication: Rhabdomyosarcoma
     Dosage: UNK (FOR 3 DAYS)
     Route: 042
     Dates: start: 20250731
  3. ETOPOSIDE [Suspect]
     Active Substance: ETOPOSIDE
     Indication: Rhabdomyosarcoma
     Dosage: UNK (FOR 3 DAYS)
     Route: 042
     Dates: start: 20250731

REACTIONS (8)
  - Neutropenic colitis [Unknown]
  - Dehydration [Recovered/Resolved]
  - Myelosuppression [Unknown]
  - Pancytopenia [Recovering/Resolving]
  - Febrile neutropenia [Recovered/Resolved]
  - Pyrexia [Unknown]
  - Vomiting [Recovered/Resolved]
  - Diarrhoea [Recovered/Resolved]
